FAERS Safety Report 9503835 (Version 1)
Quarter: 2013Q3

REPORT INFORMATION
  Report Type: Spontaneous
  Country: US (occurrence: None)
  Receive Date: 20130905
  Receipt Date: 20130905
  Transmission Date: 20140515
  Serious: No
  Sender: FDA-Public Use
  Company Number: None

PATIENT
  Age: 6 Month
  Sex: Female
  Weight: 47.63 kg

DRUGS (1)
  1. D-AMPHETAMINE [Suspect]
     Indication: ATTENTION DEFICIT/HYPERACTIVITY DISORDER
     Route: 048
     Dates: start: 20130826

REACTIONS (9)
  - Migraine [None]
  - Abdominal pain upper [None]
  - Myalgia [None]
  - Feeling jittery [None]
  - Dizziness [None]
  - Thinking abnormal [None]
  - Headache [None]
  - Nonspecific reaction [None]
  - Product substitution issue [None]
